FAERS Safety Report 19141570 (Version 2)
Quarter: 2021Q2

REPORT INFORMATION
  Report Type: Spontaneous
  Country: US (occurrence: US)
  Receive Date: 20210415
  Receipt Date: 20210505
  Transmission Date: 20210717
  Serious: No
  Sender: FDA-Public Use
  Company Number: US-BIOGEN-2021BI00999911

PATIENT
  Age: 47 Year
  Sex: Female

DRUGS (1)
  1. SPINRAZA [Suspect]
     Active Substance: NUSINERSEN
     Indication: PRODUCT USED FOR UNKNOWN INDICATION
     Route: 065

REACTIONS (3)
  - Post lumbar puncture syndrome [Recovered/Resolved]
  - Muscular weakness [Unknown]
  - Headache [Unknown]

NARRATIVE: CASE EVENT DATE: 20210114
